FAERS Safety Report 7408157-5 (Version None)
Quarter: 2011Q2

REPORT INFORMATION
  Report Type: 
  Country: None (occurrence: None)
  Receive Date: 20110412
  Receipt Date: 20101014
  Transmission Date: 20111010
  Serious: Yes (Other)
  Sender: FDA-Public Use
  Company Number: US-BAYER-201013941NA

PATIENT
  Age: 34 Year
  Sex: Female

DRUGS (2)
  1. YAZ [Suspect]
     Dosage: FREQUENCY: CONTINUOUS
     Route: 048
     Dates: start: 20070601, end: 20080401
  2. SYNTHROID [Concomitant]
     Indication: HYPOTHYROIDISM

REACTIONS (2)
  - DEEP VEIN THROMBOSIS [None]
  - PULMONARY EMBOLISM [None]
